FAERS Safety Report 4292054-0 (Version None)
Quarter: 2004Q1

REPORT INFORMATION
  Report Type: 
  Country: None (occurrence: None)
  Receive Date: 20040211
  Receipt Date: 20040126
  Transmission Date: 20041129
  Serious: Yes (Life-Threatening, Hospitalization, Disabling, Other)
  Sender: FDA-Public Use
  Company Number: WAES 0401USA01853

PATIENT
  Age: 80 Year
  Sex: Female
  Weight: 64 kg

DRUGS (3)
  1. GLIPIZIDE [Concomitant]
  2. ACTOS [Concomitant]
     Indication: DIABETES MELLITUS
  3. VIOXX [Suspect]
     Indication: OSTEOARTHRITIS
     Route: 048
     Dates: start: 20030101

REACTIONS (4)
  - DIZZINESS [None]
  - FALL [None]
  - FRACTURE [None]
  - GASTROINTESTINAL HAEMORRHAGE [None]
